FAERS Safety Report 23152987 (Version 1)
Quarter: 2023Q4

REPORT INFORMATION
  Report Type: Spontaneous
  Country: US (occurrence: US)
  Receive Date: 20231107
  Receipt Date: 20231107
  Transmission Date: 20240110
  Serious: Yes (Other)
  Sender: FDA-Public Use
  Company Number: US-HIKMA PHARMACEUTICALS USA INC.-US-H14001-23-65690

PATIENT
  Sex: Male

DRUGS (1)
  1. BUPRENORPHINE [Suspect]
     Active Substance: BUPRENORPHINE
     Indication: Withdrawal syndrome
     Dosage: THREE QUARTERS A DAY
     Route: 048

REACTIONS (4)
  - Drug ineffective [None]
  - Product storage error [Unknown]
  - Wrong technique in product usage process [Unknown]
  - Product use complaint [Unknown]
